FAERS Safety Report 4618197-7 (Version None)
Quarter: 2005Q1

REPORT INFORMATION
  Report Type: 
  Country: None (occurrence: None)
  Receive Date: 20050322
  Receipt Date: 20050309
  Transmission Date: 20050727
  Serious: Yes (Hospitalization)
  Sender: FDA-Public Use
  Company Number: 2005043919

PATIENT
  Age: 23 Year
  Sex: Female

DRUGS (2)
  1. DEPO-PROVERA [Suspect]
     Indication: ENDOMETRIOSIS
     Dosage: 150 MG (150 MG, SINGLE INERVAL: MONTHLY)
     Dates: start: 20030101, end: 20030101
  2. PROMETHAZINE [Concomitant]

REACTIONS (6)
  - BACK PAIN [None]
  - BRONCHITIS [None]
  - HEADACHE [None]
  - HEMIPLEGIA [None]
  - MALAISE [None]
  - VISUAL DISTURBANCE [None]
